FAERS Safety Report 16545117 (Version 1)
Quarter: 2019Q3

REPORT INFORMATION
  Report Type: Spontaneous
  Country: US (occurrence: US)
  Receive Date: 20190708
  Receipt Date: 20190708
  Transmission Date: 20191004
  Serious: Yes (Disabling)
  Sender: FDA-Public Use
  Company Number: None

PATIENT
  Age: 58 Year
  Weight: 76.5 kg

DRUGS (24)
  1. LEVOTHYROXINE. [Concomitant]
     Active Substance: LEVOTHYROXINE
  2. B COMPLEX - LIQUID SUBLINGUAL [Concomitant]
  3. B2 [Concomitant]
  4. REFRESH EYE DROPS [Concomitant]
  5. GABAPENTIN. [Concomitant]
     Active Substance: GABAPENTIN
  6. BENADRYL [Concomitant]
     Active Substance: DIPHENHYDRAMINE HYDROCHLORIDE
  7. FLUDROCORTISONE [Concomitant]
     Active Substance: FLUDROCORTISONE
  8. HYDROXYCHLOROQUINE [Concomitant]
     Active Substance: HYDROXYCHLOROQUINE
  9. SIMVASTATIN. [Concomitant]
     Active Substance: SIMVASTATIN
  10. TRIAMTERENE-HCTZ [Concomitant]
     Active Substance: HYDROCHLOROTHIAZIDE\TRIAMTERENE
  11. VITAMIN B12 [Concomitant]
     Active Substance: CYANOCOBALAMIN
  12. CALCIUM CALTRATE [Concomitant]
     Active Substance: CALCIUM
  13. PEPTO-BISMOL [Concomitant]
     Active Substance: BISMUTH SUBSALICYLATE
  14. BUSPIRONE [Concomitant]
     Active Substance: BUSPIRONE HYDROCHLORIDE
  15. SULFASALAZINE REG [Concomitant]
  16. TIZANIDINE. [Concomitant]
     Active Substance: TIZANIDINE
  17. D3/52 [Concomitant]
  18. D3 GEL CAPS [Concomitant]
  19. IPRATOPIUM BROMIDE NASAL [Concomitant]
  20. POTASSIUM [Concomitant]
     Active Substance: POTASSIUM
  21. QUETIAPINE. [Suspect]
     Active Substance: QUETIAPINE
     Indication: INSOMNIA
     Route: 048
  22. PROBIOTIC [Concomitant]
     Active Substance: PROBIOTICS NOS
  23. SUDAFED [Concomitant]
     Active Substance: PSEUDOEPHEDRINE HYDROCHLORIDE
  24. FISH OIL [Concomitant]
     Active Substance: FISH OIL

REACTIONS (10)
  - Suicide attempt [None]
  - Vertigo [None]
  - Off label use [None]
  - Nervous system disorder [None]
  - Balance disorder [None]
  - Weight increased [None]
  - Tinnitus [None]
  - Dizziness [None]
  - Gait inability [None]
  - Tremor [None]
